FAERS Safety Report 5881672-1 (Version None)
Quarter: 2008Q3

REPORT INFORMATION
  Report Type: 
  Country: None (occurrence: None)
  Receive Date: 20080912
  Receipt Date: 20080709
  Transmission Date: 20090109
  Serious: No
  Sender: FDA-Public Use
  Company Number: US-ABBOTT-08P-163-0461714-00

PATIENT
  Sex: Male

DRUGS (8)
  1. HUMIRA [Suspect]
     Indication: CROHN'S DISEASE
     Route: 058
     Dates: start: 20080521, end: 20080521
  2. HUMIRA [Suspect]
     Route: 058
     Dates: start: 20080603
  3. PREDNISONE TAB [Concomitant]
     Indication: CROHN'S DISEASE
     Route: 048
  4. CITRACAL + D [Concomitant]
     Indication: VITAMIN SUPPLEMENTATION
     Route: 048
  5. MULTI-VITAMIN [Concomitant]
     Indication: VITAMIN SUPPLEMENTATION
     Route: 048
  6. MAGNESIUM HYDROXIDE TAB [Concomitant]
     Indication: CROHN'S DISEASE
     Route: 048
  7. LANSOPRAZOLE [Concomitant]
     Indication: STOMACH DISCOMFORT
     Route: 048
  8. CULTURELLE [Concomitant]
     Indication: UNEVALUABLE EVENT
     Route: 048

REACTIONS (5)
  - ANOREXIA [None]
  - FEELING ABNORMAL [None]
  - NAUSEA [None]
  - OROPHARYNGEAL PAIN [None]
  - PYREXIA [None]
